FAERS Safety Report 19121349 (Version 1)
Quarter: 2021Q2

REPORT INFORMATION
  Report Type: Spontaneous
  Country: US (occurrence: US)
  Receive Date: 20210412
  Receipt Date: 20210412
  Transmission Date: 20210717
  Serious: Yes (Other)
  Sender: FDA-Public Use
  Company Number: US-GLAXOSMITHKLINE-US2021GSK080533

PATIENT
  Sex: Male

DRUGS (4)
  1. RANITIDINE. [Suspect]
     Active Substance: RANITIDINE
     Indication: DYSPEPSIA
     Dosage: OCCASIONAL|UNKNOWN AT THIS TIME|OVER THE COUNTER
     Dates: start: 200001, end: 200612
  2. ZANTAC [Suspect]
     Active Substance: RANITIDINE HYDROCHLORIDE
     Indication: DYSPEPSIA
     Dosage: OCCASIONAL|UNKNOWN AT THIS TIME|OVER THE COUNTER
     Dates: start: 200001, end: 200612
  3. ZANTAC [Suspect]
     Active Substance: RANITIDINE HYDROCHLORIDE
     Indication: DYSPEPSIA
     Dosage: OCCASIONAL|UNKNOWN AT THIS TIME|OVER THE COUNTER
     Dates: start: 200001, end: 200612
  4. RANITIDINE. [Suspect]
     Active Substance: RANITIDINE
     Indication: DYSPEPSIA
     Dosage: OCCASIONAL|UNKNOWN AT THIS TIME|OVER THE COUNTER
     Dates: start: 200001, end: 200612

REACTIONS (1)
  - Prostate cancer [Unknown]
